FAERS Safety Report 20802402 (Version 1)
Quarter: 2022Q2

REPORT INFORMATION
  Report Type: Spontaneous
  Country: US (occurrence: None)
  Receive Date: 20220509
  Receipt Date: 20220509
  Transmission Date: 20220720
  Serious: Yes (Hospitalization)
  Sender: FDA-Public Use
  Company Number: None

PATIENT
  Age: 71 Year
  Sex: Male
  Weight: 116 kg

DRUGS (1)
  1. EMPAGLIFLOZIN [Suspect]
     Active Substance: EMPAGLIFLOZIN
     Dosage: 25 MG EVERY DAY PO?
     Route: 048
     Dates: start: 20220415, end: 20220427

REACTIONS (13)
  - Cough [None]
  - Dizziness [None]
  - Loss of consciousness [None]
  - Chills [None]
  - Hyperhidrosis [None]
  - Nightmare [None]
  - Penile erythema [None]
  - Penile oedema [None]
  - Influenza [None]
  - Urinary tract infection [None]
  - Pulmonary mass [None]
  - Hypoglycaemia [None]
  - Syncope [None]

NARRATIVE: CASE EVENT DATE: 20220422
